FAERS Safety Report 20636010 (Version 1)
Quarter: 2022Q1

REPORT INFORMATION
  Report Type: Spontaneous
  Country: US (occurrence: None)
  Receive Date: 20220324
  Receipt Date: 20220324
  Transmission Date: 20220424
  Serious: Yes (Other)
  Sender: FDA-Public Use
  Company Number: None

PATIENT
  Age: 54 Year
  Sex: Female
  Weight: 90.45 kg

DRUGS (1)
  1. EUTHYROX [Suspect]
     Active Substance: LEVOTHYROXINE SODIUM
     Indication: Hypothyroidism
     Dosage: OTHER STRENGTH : MCG;?OTHER QUANTITY : 1 TABLET(S);?
     Route: 048
     Dates: start: 20220106, end: 20220324

REACTIONS (6)
  - Alopecia [None]
  - Weight increased [None]
  - Malaise [None]
  - Hypersomnia [None]
  - Blood thyroid stimulating hormone increased [None]
  - Product substitution issue [None]

NARRATIVE: CASE EVENT DATE: 20220324
